FAERS Safety Report 6335639-X (Version None)
Quarter: 2009Q3

REPORT INFORMATION
  Report Type: 
  Country: None (occurrence: None)
  Receive Date: 20090826
  Receipt Date: 20090817
  Transmission Date: 20100115
  Serious: Yes (Life-Threatening, Hospitalization)
  Sender: FDA-Public Use
  Company Number: GXKR2009GB09250

PATIENT
  Age: 21 Year
  Sex: Male

DRUGS (5)
  1. ONDANSETRON           (ONDANSETRON) UNKNOWN [Suspect]
     Indication: PROCEDURAL NAUSEA
     Dosage: 4 MG, INTRAVENOUS
     Route: 042
     Dates: start: 20090805, end: 20090805
  2. SODIUM LACTATE COMPOUND INJECTION (CALCIUM CHLORIDE DIHYDRATE, POTASSI [Concomitant]
  3. FENTANYL-100 [Concomitant]
  4. MORPHINE [Concomitant]
  5. PROPOFOL [Concomitant]

REACTIONS (4)
  - CONVULSION [None]
  - DRUG HYPERSENSITIVITY [None]
  - INCOHERENT [None]
  - LOSS OF CONSCIOUSNESS [None]
